FAERS Safety Report 15207917 (Version 3)
Quarter: 2018Q4

REPORT INFORMATION
  Report Type: Spontaneous
  Country: US (occurrence: US)
  Receive Date: 20180727
  Receipt Date: 20181108
  Transmission Date: 20190204
  Serious: No
  Sender: FDA-Public Use
  Company Number: US-SHIRE-US201828906

PATIENT
  Age: 66 Year
  Sex: Female

DRUGS (2)
  1. NATPARA (PARATHYROID HORMONE) [Suspect]
     Active Substance: PARATHYROID HORMONE
     Indication: HYPOPARATHYROIDISM
     Dosage: 75 ?G, 1X/DAY:QD
     Route: 058
     Dates: start: 20160612
  2. NATPARA (PARATHYROID HORMONE) [Suspect]
     Active Substance: PARATHYROID HORMONE
     Indication: ILL-DEFINED DISORDER

REACTIONS (5)
  - Muscular weakness [Unknown]
  - Muscle spasms [Not Recovered/Not Resolved]
  - Night sweats [Unknown]
  - Pain in extremity [Not Recovered/Not Resolved]
  - Hypoaesthesia oral [Unknown]

NARRATIVE: CASE EVENT DATE: 20160701
